FAERS Safety Report 6864856-5 (Version None)
Quarter: 2010Q3

REPORT INFORMATION
  Report Type: 
  Country: None (occurrence: None)
  Receive Date: 20100721
  Receipt Date: 20080409
  Transmission Date: 20110219
  Serious: No
  Sender: FDA-Public Use
  Company Number: US-PFIZER INC-2008031801

PATIENT
  Sex: Female
  Weight: 42.7 kg

DRUGS (2)
  1. CHANTIX [Suspect]
     Indication: SMOKING CESSATION THERAPY
     Route: 048
     Dates: start: 20080311
  2. PREMARIN [Concomitant]
     Route: 048
     Dates: start: 19880101

REACTIONS (5)
  - ABNORMAL DREAMS [None]
  - CONSTIPATION [None]
  - HOT FLUSH [None]
  - MIDDLE INSOMNIA [None]
  - NAUSEA [None]
